FAERS Safety Report 9729440 (Version 2)
Quarter: 2015Q3

REPORT INFORMATION
  Report Type: Spontaneous
  Country: US (occurrence: US)
  Receive Date: 20131204
  Receipt Date: 20150804
  Transmission Date: 20151125
  Serious: No
  Sender: FDA-Public Use
  Company Number: US-GILEAD-2009-0021413

PATIENT
  Age: 59 Year
  Sex: Female
  Weight: 72.57 kg

DRUGS (12)
  1. ATENOLOL. [Concomitant]
     Active Substance: ATENOLOL
  2. LOVASTATIN. [Concomitant]
     Active Substance: LOVASTATIN
  3. MULTIVITAMIN [Concomitant]
     Active Substance: VITAMINS
  4. PRILOSEC [Concomitant]
     Active Substance: OMEPRAZOLE MAGNESIUM
  5. SLO-NIACIN [Concomitant]
     Active Substance: DIETARY SUPPLEMENT
  6. LETAIRIS [Suspect]
     Active Substance: AMBRISENTAN
     Indication: PULMONARY ARTERIAL HYPERTENSION
     Route: 048
     Dates: start: 20090202
  7. AMITRIPTYLINE [Concomitant]
     Active Substance: AMITRIPTYLINE
  8. FLUOXETINE HCL [Concomitant]
     Active Substance: FLUOXETINE HYDROCHLORIDE
  9. LOSARTIN [Concomitant]
     Active Substance: LOSARTAN
  10. AMITRIPTYLINE [Concomitant]
     Active Substance: AMITRIPTYLINE
  11. ADULT ASPIRIN [Concomitant]
  12. NASAREL [Concomitant]
     Active Substance: FLUNISOLIDE
     Route: 045

REACTIONS (2)
  - Fatigue [Unknown]
  - Anaemia [Unknown]
